FAERS Safety Report 24696478 (Version 2)
Quarter: 2025Q1

REPORT INFORMATION
  Report Type: Spontaneous
  Country: US (occurrence: US)
  Receive Date: 20241204
  Receipt Date: 20250113
  Transmission Date: 20250409
  Serious: No
  Sender: MERCK
  Company Number: US-009507513-2411USA011516

PATIENT
  Age: 76 Year
  Sex: Male

DRUGS (4)
  1. JANUVIA [Suspect]
     Active Substance: SITAGLIPTIN PHOSPHATE
     Indication: Type 2 diabetes mellitus
     Dosage: ONCE A DAY
     Route: 048
     Dates: start: 2022
  2. VALSARTAN [Concomitant]
     Active Substance: VALSARTAN
  3. ROSUVASTATIN [Concomitant]
     Active Substance: ROSUVASTATIN
  4. METFORMIN [Concomitant]
     Active Substance: METFORMIN HYDROCHLORIDE

REACTIONS (1)
  - Blood glucose increased [Not Recovered/Not Resolved]

NARRATIVE: CASE EVENT DATE: 20241001
